FAERS Safety Report 10189068 (Version 3)
Quarter: 2014Q4

REPORT INFORMATION
  Report Type: Spontaneous
  Country: BR (occurrence: BR)
  Receive Date: 20140522
  Receipt Date: 20141112
  Transmission Date: 20150528
  Serious: Yes (Hospitalization, Other)
  Sender: FDA-Public Use
  Company Number: BR-ABBVIE-14P-020-1240091-00

PATIENT
  Sex: Female
  Weight: 45 kg

DRUGS (7)
  1. CHEMOTHERAPEUTICS [Concomitant]
     Active Substance: UNSPECIFIED INGREDIENT
     Indication: NEOPLASM MALIGNANT
     Route: 048
     Dates: end: 20131227
  2. CHEMOTHERAPEUTICS [Concomitant]
     Active Substance: UNSPECIFIED INGREDIENT
     Indication: NEOPLASM MALIGNANT
     Route: 042
  3. DIGESAN [Concomitant]
     Indication: DYSPEPSIA
  4. CREON [Suspect]
     Active Substance: PANCRELIPASE AMYLASE\PANCRELIPASE LIPASE\PANCRELIPASE PROTEASE
     Dosage: FORM STRENGTH: 10.000 UI; DAILY DOSE: 9 CAPSULE
     Route: 048
  5. CREON [Suspect]
     Active Substance: PANCRELIPASE AMYLASE\PANCRELIPASE LIPASE\PANCRELIPASE PROTEASE
     Dosage: FORM STRENGTH: 10.000 UI; DAILY DOSE: 6 CAPSULE
     Route: 065
  6. OMEPRAZOLE. [Concomitant]
     Active Substance: OMEPRAZOLE
     Indication: GASTRIC DISORDER
  7. CREON [Suspect]
     Active Substance: PANCRELIPASE AMYLASE\PANCRELIPASE LIPASE\PANCRELIPASE PROTEASE
     Indication: PANCREATIC CARCINOMA
     Dosage: FORM STRENGTH: 10.000 UI; DAILY DOSE: 15 CAPSULE
     Route: 048

REACTIONS (12)
  - Neoplasm malignant [Unknown]
  - Expired product administered [Unknown]
  - Muscle atrophy [Unknown]
  - Asthenia [Unknown]
  - Underdose [Unknown]
  - Weight decreased [Unknown]
  - Haemorrhage [Recovered/Resolved]
  - Gastric operation [Unknown]
  - Intestinal operation [Unknown]
  - Gallbladder operation [Unknown]
  - Feeling abnormal [Unknown]
  - Nausea [Unknown]

NARRATIVE: CASE EVENT DATE: 2013
